FAERS Safety Report 7979947-5 (Version None)
Quarter: 2011Q4

REPORT INFORMATION
  Report Type: 
  Country: None (occurrence: None)
  Receive Date: 20111214
  Receipt Date: 20111202
  Transmission Date: 20120403
  Serious: Yes (Hospitalization)
  Sender: FDA-Public Use
  Company Number: US-ROCHE-1018961

PATIENT
  Sex: Male

DRUGS (1)
  1. RITUXAN [Suspect]
     Indication: LUPUS NEPHRITIS
     Route: 042

REACTIONS (6)
  - ASTHENIA [None]
  - HAEMATURIA [None]
  - BLOOD CREATININE INCREASED [None]
  - FATIGUE [None]
  - URINARY TRACT INFECTION [None]
  - INTERNATIONAL NORMALISED RATIO INCREASED [None]
